FAERS Safety Report 9442304 (Version 1)
Quarter: 2013Q3

REPORT INFORMATION
  Report Type: Spontaneous
  Country: US (occurrence: US)
  Receive Date: 20130806
  Receipt Date: 20130806
  Transmission Date: 20140515
  Serious: No
  Sender: FDA-Public Use
  Company Number: US-GLAXOSMITHKLINE-A0999175A

PATIENT
  Age: 74 Year
  Sex: Male

DRUGS (7)
  1. ADVAIR [Suspect]
     Indication: CHRONIC OBSTRUCTIVE PULMONARY DISEASE
     Dosage: 2PUFF TWICE PER DAY
     Route: 055
  2. VENTOLIN [Suspect]
     Indication: CHRONIC OBSTRUCTIVE PULMONARY DISEASE
     Route: 055
  3. ARICEPT [Suspect]
     Indication: AMNESIA
     Dosage: 5MG PER DAY
     Dates: start: 20121002
  4. MULTIVITAMIN [Concomitant]
  5. ASPIRIN [Concomitant]
  6. LIPITOR [Concomitant]
  7. XANAX [Concomitant]

REACTIONS (5)
  - Dysphonia [Not Recovered/Not Resolved]
  - Muscle spasms [Unknown]
  - Sleep disorder [Unknown]
  - Nasopharyngitis [Unknown]
  - Drug ineffective [Unknown]
